FAERS Safety Report 7022418-3 (Version None)
Quarter: 2010Q3

REPORT INFORMATION
  Report Type: 
  Country: None (occurrence: None)
  Receive Date: 20100930
  Receipt Date: 20100922
  Transmission Date: 20110219
  Serious: Yes (Hospitalization)
  Sender: FDA-Public Use
  Company Number: JP-ROCHE-724237

PATIENT
  Sex: Female
  Weight: 62 kg

DRUGS (2)
  1. AVASTIN [Suspect]
     Indication: GLIOBLASTOMA
     Route: 042
     Dates: start: 20091228, end: 20100316
  2. AVASTIN [Suspect]
     Route: 042
     Dates: start: 20100318

REACTIONS (3)
  - PNEUMONIA ASPIRATION [None]
  - TACHYCARDIA [None]
  - TUMOUR HAEMORRHAGE [None]
